FAERS Safety Report 4636735-5 (Version None)
Quarter: 2005Q2

REPORT INFORMATION
  Report Type: 
  Country: None (occurrence: None)
  Receive Date: 20050414
  Receipt Date: 20050401
  Transmission Date: 20051028
  Serious: Yes (Other)
  Sender: FDA-Public Use
  Company Number: USA-2005-0019627

PATIENT
  Age: 52 Year
  Sex: Female

DRUGS (2)
  1. PALLADONE [Suspect]
     Dosage: 12 MG, Q24H
  2. FENTANYL [Suspect]

REACTIONS (6)
  - BODY TEMPERATURE INCREASED [None]
  - DIARRHOEA [None]
  - DRUG WITHDRAWAL SYNDROME [None]
  - INADEQUATE ANALGESIA [None]
  - PARAESTHESIA [None]
  - SUICIDAL IDEATION [None]
